FAERS Safety Report 5653901-0 (Version None)
Quarter: 2008Q1

REPORT INFORMATION
  Report Type: 
  Country: None (occurrence: None)
  Receive Date: 20080306
  Receipt Date: 20080225
  Transmission Date: 20080703
  Serious: No
  Sender: FDA-Public Use
  Company Number: AT-ELI_LILLY_AND_COMPANY-AT200802005809

PATIENT
  Sex: Male
  Weight: 70 kg

DRUGS (7)
  1. CYMBALTA [Suspect]
     Dosage: 60 MG, DAILY (1/D)
     Route: 048
     Dates: start: 20080212, end: 20080222
  2. ZYPREXA [Suspect]
     Indication: SCHIZOPHRENIA
     Dosage: 15 MG, DAILY (1/D)
     Dates: start: 20080131
  3. HALOPERIDOL [Concomitant]
     Indication: SCHIZOPHRENIA
     Dosage: 50 MG, DAILY (1/D)
     Dates: start: 20071001
  4. PANTOPRAZOLE [Concomitant]
     Dosage: 40 MG, DAILY (1/D)
     Dates: start: 20071001
  5. PANTOPRAZOLE [Concomitant]
     Dates: start: 20080212
  6. AKINETON [Concomitant]
     Dosage: 4 MG, DAILY (1/D)
     Dates: start: 20071001
  7. MIRTAZAPINE [Concomitant]
     Dates: start: 20080211

REACTIONS (1)
  - LIVER FUNCTION TEST ABNORMAL [None]
